FAERS Safety Report 7475915-0 (Version None)
Quarter: 2011Q2

REPORT INFORMATION
  Report Type: 
  Country: None (occurrence: None)
  Receive Date: 20110512
  Receipt Date: 20110504
  Transmission Date: 20111010
  Serious: Yes (Death, Hospitalization)
  Sender: FDA-Public Use
  Company Number: PHHY2010MX49697

PATIENT
  Sex: Female
  Weight: 55 kg

DRUGS (1)
  1. ZOLEDRONOC ACID [Suspect]
     Indication: OSTEOPOROSIS
     Dosage: 5 MG, UNK
     Route: 042
     Dates: start: 20090801

REACTIONS (6)
  - EMBOLISM [None]
  - DIABETES MELLITUS [None]
  - SOMNOLENCE [None]
  - RENAL FAILURE [None]
  - DIZZINESS [None]
  - FATIGUE [None]
